FAERS Safety Report 16367178 (Version 1)
Quarter: 2019Q2

REPORT INFORMATION
  Report Type: Spontaneous
  Country: NL (occurrence: NL)
  Receive Date: 20190529
  Receipt Date: 20190529
  Transmission Date: 20190711
  Serious: Yes (Hospitalization, Other)
  Sender: FDA-Public Use
  Company Number: NL-MYLANLABS-2019M1050334

PATIENT
  Age: 44 Year
  Sex: Female

DRUGS (4)
  1. DROSPIRENONE/ETHINYLESTRADIOL [Suspect]
     Active Substance: DROSPIRENONE\ETHINYL ESTRADIOL
     Dosage: RE-INITIATION
     Route: 048
  2. EZETIMIBE. [Concomitant]
     Active Substance: EZETIMIBE
     Indication: HYPOCHOLESTEROLAEMIA
     Route: 065
  3. GEMFIBROZIL. [Suspect]
     Active Substance: GEMFIBROZIL
     Indication: HYPERTRIGLYCERIDAEMIA
     Dosage: 600 MILLIGRAM
     Route: 065
  4. DROSPIRENONE/ETHINYLESTRADIOL [Suspect]
     Active Substance: DROSPIRENONE\ETHINYL ESTRADIOL
     Indication: ORAL CONTRACEPTION
     Dosage: UNK
     Route: 048

REACTIONS (6)
  - Condition aggravated [Recovered/Resolved]
  - Pancreatitis [Recovering/Resolving]
  - Alopecia [Unknown]
  - Hypertriglyceridaemia [Recovered/Resolved]
  - Hypotension [Recovering/Resolving]
  - Anuria [Recovering/Resolving]

NARRATIVE: CASE EVENT DATE: 2014
